FAERS Safety Report 22115756 (Version 1)
Quarter: 2023Q1

REPORT INFORMATION
  Report Type: Spontaneous
  Country: JP (occurrence: JP)
  Receive Date: 20230320
  Receipt Date: 20230320
  Transmission Date: 20230417
  Serious: Yes (Other)
  Sender: FDA-Public Use
  Company Number: JP-002147023-NVSJ2023JP004944

PATIENT
  Age: 81 Year
  Sex: Male

DRUGS (1)
  1. METHOTREXATE [Suspect]
     Active Substance: METHOTREXATE
     Indication: Rheumatoid arthritis
     Dosage: INTAKE FOR 4 CONSECUTIVE DAYS
     Route: 048

REACTIONS (6)
  - Purpura [Unknown]
  - Erythema [Unknown]
  - Papule [Unknown]
  - Oral mucosa erosion [Unknown]
  - Full blood count decreased [Unknown]
  - Inappropriate schedule of product administration [Unknown]
